FAERS Safety Report 8417252 (Version 3)
Quarter: 2013Q2

REPORT INFORMATION
  Report Type: Report from Study
  Country: US (occurrence: US)
  Receive Date: 20120220
  Receipt Date: 20130607
  Transmission Date: 20140414
  Serious: Yes (Other)
  Sender: FDA-Public Use
  Company Number: US-ROCHE-1038207

PATIENT
  Age: 77 Year
  Sex: Female
  Weight: 58.11 kg

DRUGS (3)
  1. RANIBIZUMAB [Suspect]
     Indication: AGE-RELATED MACULAR DEGENERATION
     Route: 050
     Dates: start: 20090301
  2. PROVERA [Concomitant]
     Route: 030
  3. ARMOUR THYROID [Concomitant]
     Route: 030

REACTIONS (10)
  - Blindness unilateral [Unknown]
  - Glaucoma [Unknown]
  - Cataract operation [Unknown]
  - Tenderness [Unknown]
  - Visual impairment [Recovered/Resolved]
  - Abnormal sensation in eye [Recovered/Resolved]
  - Eye pain [Recovered/Resolved]
  - Visual impairment [Not Recovered/Not Resolved]
  - Headache [Not Recovered/Not Resolved]
  - Injection site pain [Unknown]
